FAERS Safety Report 6708909-0 (Version None)
Quarter: 2010Q2

REPORT INFORMATION
  Report Type: 
  Country: None (occurrence: None)
  Receive Date: 20100504
  Receipt Date: 20100423
  Transmission Date: 20101027
  Serious: Yes (Hospitalization)
  Sender: FDA-Public Use
  Company Number: US-JNJFOC-20100406881

PATIENT
  Sex: Female
  Weight: 113.4 kg

DRUGS (3)
  1. FENTANYL CITRATE [Suspect]
     Indication: PAIN
     Dosage: 100 UG/HR AND 25 UG/HR
     Route: 062
  2. FENTANYL CITRATE [Suspect]
     Dosage: TWO 75 UG/HR
     Route: 062
  3. MANY OTHER UNSPECIFIED MEDICATIONS [Concomitant]
     Indication: DRUG USE FOR UNKNOWN INDICATION
     Route: 065

REACTIONS (6)
  - APPLICATION SITE EROSION [None]
  - HYPERSENSITIVITY [None]
  - INTERVERTEBRAL DISC PROTRUSION [None]
  - OSTEOARTHRITIS [None]
  - ROAD TRAFFIC ACCIDENT [None]
  - SCIATICA [None]
